FAERS Safety Report 9446017 (Version 2)
Quarter: 2013Q3

REPORT INFORMATION
  Report Type: Spontaneous
  Country: IT (occurrence: IT)
  Receive Date: 20130807
  Receipt Date: 20130903
  Transmission Date: 20140515
  Serious: Yes (Hospitalization)
  Sender: FDA-Public Use
  Company Number: IT-MYLANLABS-2013S1016852

PATIENT
  Age: 49 Year
  Sex: Male

DRUGS (9)
  1. OMEPRAZOLE [Suspect]
     Indication: PROPHYLAXIS
     Route: 042
     Dates: start: 20130521, end: 20130521
  2. TORA-DOL [Suspect]
     Indication: POSTOPERATIVE ANALGESIA
     Route: 042
     Dates: start: 20130521, end: 20130522
  3. PERFALGAN [Suspect]
     Indication: POSTOPERATIVE ANALGESIA
     Route: 042
     Dates: start: 20130521, end: 20130522
  4. CEFAMEZIN [Suspect]
     Indication: ANTIBIOTIC PROPHYLAXIS
     Route: 042
     Dates: start: 20130521, end: 20130522
  5. REMIFENTANIL TEVA [Suspect]
     Indication: ANAESTHESIA
     Route: 042
     Dates: start: 20130521, end: 20130521
  6. PROPOFOL KABI [Suspect]
     Indication: ANAESTHESIA
     Route: 042
     Dates: start: 20130521, end: 20130521
  7. MORPHINE [Suspect]
     Indication: PRODUCT USED FOR UNKNOWN INDICATION
     Route: 042
     Dates: start: 20130521, end: 20130521
  8. ESMERON [Suspect]
     Indication: ANAESTHESIA
     Route: 042
     Dates: start: 20130521, end: 20130521
  9. IVOR [Concomitant]
     Indication: PRODUCT USED FOR UNKNOWN INDICATION

REACTIONS (3)
  - Renal failure acute [Recovered/Resolved]
  - Lower respiratory tract inflammation [Recovered/Resolved]
  - Tubulointerstitial nephritis [Recovered/Resolved]
